FAERS Safety Report 17939170 (Version 1)
Quarter: 2020Q2

REPORT INFORMATION
  Report Type: Spontaneous
  Country: DE (occurrence: DE)
  Receive Date: 20200625
  Receipt Date: 20200625
  Transmission Date: 20200714
  Serious: Yes (Hospitalization)
  Sender: FDA-Public Use
  Company Number: DE-TEVA-2020-DE-1790645

PATIENT
  Age: 71 Year
  Sex: Female

DRUGS (8)
  1. PYRIDOXIN (VITAMIN B6) [Concomitant]
     Dosage: 100 MILLIGRAM DAILY;  1-0-0-0,
     Route: 048
  2. ZOLPIDEM [Suspect]
     Active Substance: ZOLPIDEM TARTRATE
     Dosage: 5 MILLIGRAM DAILY;  0-0-1-0,
     Route: 048
  3. MELPERON [Concomitant]
     Active Substance: MELPERONE
     Dosage: 50 MILLIGRAM DAILY;  0-0-1-0,
     Route: 048
  4. TILIDINE/NALOXONE [Suspect]
     Active Substance: NALOXONE HYDROCHLORIDE\TILIDINE HYDROCHLORIDE
     Dosage: 3 DOSAGE FORMS DAILY; 4|50 MG, 1-1-1-0, MEDICATION ERRORS
     Route: 048
  5. COLECALCIFEROL (VITAMIN D) [Concomitant]
     Dosage: 1000 IU (INTERNATIONAL UNIT) DAILY; 1-0-0-0,
     Route: 048
  6. PROPRANOLOL [Suspect]
     Active Substance: PROPRANOLOL HYDROCHLORIDE
     Dosage: 20 MILLIGRAM DAILY; 1-0-1-0,
     Route: 048
  7. THIAMIN (VITAMIN B1) [Concomitant]
     Dosage: 1 DOSAGE FORMS DAILY; 1-0-0-0
     Route: 048
  8. UNIZINK 50 [Concomitant]
     Dosage: 50 MILLIGRAM DAILY;  1-0-0-0,
     Route: 048

REACTIONS (4)
  - Accidental overdose [Unknown]
  - Fall [Unknown]
  - General physical health deterioration [Unknown]
  - Dizziness [Unknown]
